FAERS Safety Report 17971812 (Version 2)
Quarter: 2020Q3

REPORT INFORMATION
  Report Type: Report from Study
  Country: US (occurrence: US)
  Receive Date: 20200701
  Receipt Date: 20200814
  Transmission Date: 20201103
  Serious: Yes (Death, Hospitalization)
  Sender: FDA-Public Use
  Company Number: US-ACTELION-A-NJ2018-169117

PATIENT
  Age: 24 Year
  Sex: Male
  Weight: 110.2 kg

DRUGS (4)
  1. VELETRI [Suspect]
     Active Substance: EPOPROSTENOL
     Dosage: 29 NG/KG, PER MIN
     Route: 042
  2. LETAIRIS [Concomitant]
     Active Substance: AMBRISENTAN
  3. VELETRI [Suspect]
     Active Substance: EPOPROSTENOL
     Indication: PULMONARY ARTERIAL HYPERTENSION
     Dosage: 30 NG/KG, PER MIN
     Route: 042
  4. VELETRI [Suspect]
     Active Substance: EPOPROSTENOL
     Dosage: 10 NG/KG, PER MIN
     Route: 042

REACTIONS (10)
  - Sepsis [Unknown]
  - Catheter site pruritus [Unknown]
  - Hypoxia [Unknown]
  - Catheter site discolouration [Unknown]
  - Death [Fatal]
  - Catheter management [Unknown]
  - Arthralgia [Unknown]
  - Catheter site dermatitis [Unknown]
  - Device related infection [Unknown]
  - Headache [Unknown]

NARRATIVE: CASE EVENT DATE: 20200730
